FAERS Safety Report 9303390 (Version 2)
Quarter: 2013Q1

REPORT INFORMATION
  Report Type: Spontaneous
  Country: US (occurrence: None)
  Receive Date: 20121205
  Receipt Date: 20121226
  Transmission Date: 20140127
  Serious: Yes (Other)
  Sender: FDA-Public Use
  Company Number: OTH-PAT-2012010

PATIENT
  Age: 4 Year
  Sex: Male

DRUGS (4)
  1. CYSTADANE (BETAINE ANHYDROUS) (ORAL POWDER) 180MG [Suspect]
     Indication: VITAMIN B12 DEFICIENCY
  2. FOLIC ACID [Concomitant]
  3. HYDROXOCOBALAMIN [Concomitant]
  4. CARNITINE [Concomitant]

REACTIONS (3)
  - Vomiting [None]
  - Abdominal discomfort [None]
  - Gastrooesophageal reflux disease [None]
